FAERS Safety Report 5484463-9 (Version None)
Quarter: 2007Q4

REPORT INFORMATION
  Report Type: 
  Country: None (occurrence: None)
  Receive Date: 20071010
  Receipt Date: 20070928
  Transmission Date: 20080405
  Serious: Yes (Hospitalization)
  Sender: FDA-Public Use
  Company Number: GXKR2007US08401

PATIENT
  Age: 74 Year
  Sex: Female

DRUGS (6)
  1. PROPAFENONE (NGX)(PROPAFENONE) UNKNOWN [Suspect]
     Indication: ATRIAL FIBRILLATION
     Dosage: 450 MG DAILY
  2. RISPERIDONE [Suspect]
  3. FLUOXETINE [Suspect]
  4. FUROSEMIDE [Concomitant]
  5. ATORVASTATIN CALCIUM [Concomitant]
  6. WARFARIN SODIUM [Concomitant]

REACTIONS (24)
  - ALANINE AMINOTRANSFERASE INCREASED [None]
  - ANOREXIA [None]
  - ASPARTATE AMINOTRANSFERASE INCREASED [None]
  - ATRIAL FLUTTER [None]
  - BLOOD CREATININE INCREASED [None]
  - BLOOD LACTIC ACID INCREASED [None]
  - BLOOD POTASSIUM INCREASED [None]
  - CARDIAC DISORDER [None]
  - CARDIAC MURMUR [None]
  - CARDIAC OUTPUT DECREASED [None]
  - CARDIOVERSION [None]
  - CAROTID BRUIT [None]
  - DIZZINESS [None]
  - DRUG INTERACTION POTENTIATION [None]
  - DRUG TOXICITY [None]
  - ELECTROCARDIOGRAM QRS COMPLEX PROLONGED [None]
  - LETHARGY [None]
  - MALAISE [None]
  - MITRAL VALVE INCOMPETENCE [None]
  - NAUSEA [None]
  - PALPITATIONS [None]
  - PERIPHERAL COLDNESS [None]
  - TRICUSPID VALVE INCOMPETENCE [None]
  - WHEEZING [None]
